FAERS Safety Report 8943384 (Version 2)
Quarter: 2013Q4

REPORT INFORMATION
  Report Type: Spontaneous
  Country: US (occurrence: US)
  Receive Date: 20121204
  Receipt Date: 20131018
  Transmission Date: 20140711
  Serious: Yes (Hospitalization, Other)
  Sender: FDA-Public Use
  Company Number: US-PFIZER INC-2012301901

PATIENT
  Age: 64 Year
  Sex: Female

DRUGS (10)
  1. ATENOLOL [Suspect]
     Indication: HYPERTENSION
     Dosage: UNK
     Route: 065
  2. DETROL LA [Concomitant]
     Dosage: UNK
     Route: 065
  3. PANCRELIPASE [Concomitant]
     Dosage: UNK
     Route: 065
  4. LEVOTHYROXINE [Concomitant]
     Dosage: UNK
     Route: 065
  5. MULTIVITAMINS [Concomitant]
     Dosage: UNK
     Route: 065
  6. PROCHLORPERAZINE [Concomitant]
     Dosage: UNK
     Route: 065
  7. FENTANYL [Concomitant]
     Dosage: UNK
     Route: 065
  8. FOLIC ACID [Concomitant]
     Dosage: UNK
     Route: 065
  9. IRON [Concomitant]
     Dosage: UNK
     Route: 065
  10. VICODIN [Concomitant]
     Dosage: UNK
     Route: 065

REACTIONS (20)
  - Renal failure chronic [Not Recovered/Not Resolved]
  - Hyperkalaemia [Unknown]
  - Gastric ulcer [Unknown]
  - Upper gastrointestinal haemorrhage [Unknown]
  - Pancreatic carcinoma [Not Recovered/Not Resolved]
  - Anaemia [Not Recovered/Not Resolved]
  - Abdominal pain [Not Recovered/Not Resolved]
  - Oedema peripheral [Unknown]
  - Stag horn calculus [Not Recovered/Not Resolved]
  - Metastases to liver [Unknown]
  - Metabolic acidosis [Unknown]
  - Cardiac failure congestive [Unknown]
  - Asthenia [Unknown]
  - Barrett^s oesophagus [Unknown]
  - Renal failure acute [Unknown]
  - Venous thrombosis [Unknown]
  - Intervertebral disc compression [Unknown]
  - Hypothyroidism [Unknown]
  - Hyperlipidaemia [Unknown]
  - Bladder spasm [Unknown]
